FAERS Safety Report 24410526 (Version 1)
Quarter: 2024Q4

REPORT INFORMATION
  Report Type: Other
  Country: SE (occurrence: SE)
  Receive Date: 20241008
  Receipt Date: 20241008
  Transmission Date: 20250114
  Serious: Yes (Life-Threatening)
  Sender: B BRAUN
  Company Number: SE-B.Braun Medical Inc.-2162632

PATIENT
  Age: 64 Year
  Sex: Male

DRUGS (6)
  1. HEPARIN SODIUM IN DEXTROSE [Suspect]
     Active Substance: HEPARIN SODIUM
     Indication: Pulmonary embolism
  2. NITROGLYCERIN [Suspect]
     Active Substance: NITROGLYCERIN
  3. CLOPIDOGREL [Suspect]
     Active Substance: CLOPIDOGREL BISULFATE
  4. ASPIRIN [Suspect]
     Active Substance: ASPIRIN
  5. TINZAPARIN SODIUM [Suspect]
     Active Substance: TINZAPARIN SODIUM
  6. MILRINONE [Suspect]
     Active Substance: MILRINONE

REACTIONS (1)
  - Drug ineffective [Unknown]
